FAERS Safety Report 9705642 (Version 1)
Quarter: 2013Q4

REPORT INFORMATION
  Report Type: Spontaneous
  Country: US (occurrence: US)
  Receive Date: 20131122
  Receipt Date: 20131122
  Transmission Date: 20140711
  Serious: No
  Sender: FDA-Public Use
  Company Number: US-GILEAD-2008-0017470

PATIENT
  Sex: Female
  Weight: 108.86 kg

DRUGS (8)
  1. LETAIRIS [Suspect]
     Indication: PULMONARY ARTERIAL HYPERTENSION
     Route: 048
     Dates: start: 20080501
  2. PREDNISONE [Concomitant]
     Route: 048
  3. COUMADIN [Concomitant]
     Route: 048
  4. SYNTHROID [Concomitant]
     Route: 048
  5. CYCLOBENZAPRINE [Concomitant]
     Route: 048
  6. ALBUTEROL [Concomitant]
     Route: 055
  7. VITAMIN D [Concomitant]
     Route: 048
  8. HYDROXYCHLOROQUINE [Concomitant]
     Route: 048

REACTIONS (2)
  - Chest pain [None]
  - Dyspnoea [None]
